FAERS Safety Report 10952883 (Version 3)
Quarter: 2015Q2

REPORT INFORMATION
  Report Type: Spontaneous
  Country: JP (occurrence: None)
  Receive Date: 20150323
  Receipt Date: 20150512
  Transmission Date: 20150821
  Serious: Yes (Hospitalization, Other)
  Sender: FDA-Public Use
  Company Number: 2015-10863

PATIENT
  Age: 70 Year
  Sex: Male
  Weight: 65 kg

DRUGS (3)
  1. CHLORAMPHENICOL, COLISTIMETHATE SODIUM (A COMPONENT) [Concomitant]
  2. EYLEA [Suspect]
     Active Substance: AFLIBERCEPT
     Indication: DIABETIC RETINAL OEDEMA
     Dosage: ONCE, OD
     Route: 031
     Dates: start: 20150303, end: 20150303
  3. BRONUCK (BROMFENAC SODIUM) [Concomitant]

REACTIONS (4)
  - Muscular weakness [None]
  - Loss of consciousness [None]
  - Visual acuity reduced transiently [None]
  - Dizziness [None]

NARRATIVE: CASE EVENT DATE: 20150303
